FAERS Safety Report 6641966-9 (Version None)
Quarter: 2010Q1

REPORT INFORMATION
  Report Type: 
  Country: None (occurrence: None)
  Receive Date: 20100319
  Receipt Date: 20100308
  Transmission Date: 20100710
  Serious: Yes (Death)
  Sender: FDA-Public Use
  Company Number: AU-JNJFOC-20100304211

PATIENT
  Age: 41 Year
  Sex: Female

DRUGS (6)
  1. TRAMADOL HYDROCHLORIDE [Suspect]
     Indication: DRUG USE FOR UNKNOWN INDICATION
     Route: 065
  2. CITALOPRAM HYDROBROMIDE [Interacting]
     Indication: DRUG USE FOR UNKNOWN INDICATION
     Route: 065
  3. CODEINE SULFATE [Concomitant]
     Route: 065
  4. DIAZEPAM [Concomitant]
     Route: 065
  5. NORDIAZEPAM [Concomitant]
     Route: 065
  6. IBUPROFEN [Concomitant]
     Route: 065

REACTIONS (3)
  - DRUG INTERACTION [None]
  - OVERDOSE [None]
  - SEROTONIN SYNDROME [None]
